FAERS Safety Report 12670831 (Version 1)
Quarter: 2016Q3

REPORT INFORMATION
  Report Type: Spontaneous
  Country: US (occurrence: None)
  Receive Date: 20160819
  Receipt Date: 20160819
  Transmission Date: 20161109
  Serious: Yes (Disabling)
  Sender: FDA-Public Use
  Company Number: None

PATIENT
  Age: 61 Year
  Sex: Female
  Weight: 63.5 kg

DRUGS (6)
  1. LEVAQUIN [Suspect]
     Active Substance: LEVOFLOXACIN
     Indication: SINUSITIS
     Dosage: 500 MG 10 TAB 1-TAB ONCE A DAY BY MOUTH
     Route: 048
     Dates: start: 20160714, end: 20160719
  2. LOSARTAN POTASSIUM. [Concomitant]
     Active Substance: LOSARTAN POTASSIUM
  3. LEVAQUIN [Suspect]
     Active Substance: LEVOFLOXACIN
     Indication: URINARY TRACT INFECTION
     Dosage: 500 MG 10 TAB 1-TAB ONCE A DAY BY MOUTH
     Route: 048
     Dates: start: 20160714, end: 20160719
  4. SPIRONOLACTONE. [Concomitant]
     Active Substance: SPIRONOLACTONE
  5. CINNAMON. [Concomitant]
     Active Substance: CINNAMON
  6. COD LIVER OIL [Concomitant]
     Active Substance: COD LIVER OIL

REACTIONS (4)
  - Gait disturbance [None]
  - Arthralgia [None]
  - Tendonitis [None]
  - Swelling [None]

NARRATIVE: CASE EVENT DATE: 20160719
